FAERS Safety Report 7771652-3 (Version None)
Quarter: 2011Q3

REPORT INFORMATION
  Report Type: 
  Country: None (occurrence: None)
  Receive Date: 20110922
  Receipt Date: 20100811
  Transmission Date: 20111222
  Serious: No
  Sender: FDA-Public Use
  Company Number: US-ASTRAZENECA-2007UW24315

PATIENT
  Age: 51 Year
  Sex: Male
  Weight: 176.9 kg

DRUGS (16)
  1. WELLBUTRIN [Concomitant]
     Dosage: 150 MG - 300 MG
     Route: 048
     Dates: start: 20040319, end: 20070820
  2. SEROQUEL [Suspect]
     Indication: DEPRESSION
     Dosage: 100 MG TO 400 MG
     Route: 048
     Dates: start: 20030606, end: 20070425
  3. SEROQUEL [Suspect]
     Route: 048
     Dates: start: 20030908
  4. PROVIGIL [Concomitant]
     Route: 048
     Dates: start: 20060714
  5. CYMBALTA [Concomitant]
     Dosage: 30 MG - 90 MG
     Route: 048
     Dates: start: 20050913, end: 20070720
  6. SEROQUEL [Suspect]
     Route: 048
     Dates: start: 20041027
  7. SEROQUEL [Suspect]
     Route: 048
     Dates: start: 20060811
  8. HALDOL [Concomitant]
     Dates: start: 19990101
  9. SEROQUEL [Suspect]
     Dosage: 200 MG AT AFTERNOON AND 300 MG AT NIGHT
     Route: 048
     Dates: start: 20040112
  10. RISPERDAL [Concomitant]
     Indication: DEPRESSION
     Dosage: 2-3 MG
     Dates: start: 20040112, end: 20041027
  11. LEXAPRO [Concomitant]
     Route: 048
     Dates: start: 20040319
  12. SEROQUEL [Suspect]
     Route: 048
     Dates: start: 20050913
  13. SEROQUEL [Suspect]
     Route: 048
     Dates: start: 20080101
  14. ABILIFY [Concomitant]
     Route: 048
     Dates: start: 20050902
  15. TOPAMAX [Concomitant]
     Route: 048
     Dates: start: 20060714, end: 20070920
  16. SEROQUEL [Suspect]
     Dosage: 100 MG AT MORNING AND 600 MG AT NIGHT
     Route: 048
     Dates: start: 20031104

REACTIONS (4)
  - TYPE 2 DIABETES MELLITUS [None]
  - GASTRIC DISORDER [None]
  - DIABETIC COMPLICATION [None]
  - OEDEMA [None]
